FAERS Safety Report 8672282 (Version 2)
Quarter: 2013Q4

REPORT INFORMATION
  Report Type: Spontaneous
  Country: ES (occurrence: ES)
  Receive Date: 20120719
  Receipt Date: 20131105
  Transmission Date: 20140711
  Serious: Yes (Death)
  Sender: FDA-Public Use
  Company Number: ES-009507513-1207ESP002326

PATIENT
  Sex: Male

DRUGS (1)
  1. SYCREST [Suspect]
     Indication: BIPOLAR I DISORDER
     Route: 060

REACTIONS (1)
  - Completed suicide [Fatal]
